FAERS Safety Report 7262629-5 (Version None)
Quarter: 2011Q1

REPORT INFORMATION
  Report Type: 
  Country: None (occurrence: None)
  Receive Date: 20110130
  Receipt Date: 20100913
  Transmission Date: 20110831
  Serious: No
  Sender: FDA-Public Use
  Company Number: US-ABBOTT-10P-163-0670579-00

PATIENT
  Age: 48 Year
  Sex: Female

DRUGS (6)
  1. ILOPID [Concomitant]
     Indication: BLOOD CHOLESTEROL INCREASED
  2. PROZAC [Concomitant]
     Indication: DEPRESSION
  3. HUMIRA [Suspect]
     Indication: CROHN'S DISEASE
     Dates: start: 20100801
  4. ATIVAN [Concomitant]
     Indication: ANXIETY
  5. AMBIEN [Concomitant]
     Indication: INSOMNIA
  6. WELLBUTRIN [Concomitant]
     Indication: DEPRESSION

REACTIONS (3)
  - NAUSEA [None]
  - DIARRHOEA [None]
  - PAIN [None]
